FAERS Safety Report 26185630 (Version 1)
Quarter: 2025Q4

REPORT INFORMATION
  Report Type: Report from Study
  Country: ZA (occurrence: ZA)
  Receive Date: 20251222
  Receipt Date: 20251222
  Transmission Date: 20260117
  Serious: Yes (Other)
  Sender: ROCHE
  Company Number: ZA-ROCHE-10000114570

PATIENT
  Sex: Male

DRUGS (4)
  1. VABYSMO [Suspect]
     Active Substance: FARICIMAB-SVOA
     Indication: Macular degeneration
     Dosage: 2ND INJECTION ON: 04-NOV-2024?3RD INJECTION ON: 04-DEC-2024
  2. VABYSMO [Suspect]
     Active Substance: FARICIMAB-SVOA
     Indication: Polypoidal choroidal vasculopathy
  3. AVASTIN [Suspect]
     Active Substance: BEVACIZUMAB
     Indication: Polypoidal choroidal vasculopathy
  4. AVASTIN [Suspect]
     Active Substance: BEVACIZUMAB
     Indication: Macular degeneration

REACTIONS (4)
  - Off label use [Unknown]
  - Retinal thickening [Unknown]
  - Off label use [Unknown]
  - Optical coherence tomography abnormal [Unknown]
